FAERS Safety Report 21492618 (Version 4)
Quarter: 2023Q1

REPORT INFORMATION
  Report Type: Spontaneous
  Country: US (occurrence: US)
  Receive Date: 20221021
  Receipt Date: 20230301
  Transmission Date: 20230417
  Serious: Yes (Other)
  Sender: FDA-Public Use
  Company Number: US-PFIZER INC-PV202200086890

PATIENT
  Age: 51 Year
  Sex: Female

DRUGS (4)
  1. XELJANZ XR [Suspect]
     Active Substance: TOFACITINIB CITRATE
     Indication: Rheumatoid arthritis
     Dosage: 11 MG, DAILY
     Route: 048
     Dates: start: 202110, end: 202112
  2. XELJANZ XR [Suspect]
     Active Substance: TOFACITINIB CITRATE
     Dosage: 11 MG, DAILY
     Dates: end: 20230222
  3. RINVOQ [Concomitant]
     Active Substance: UPADACITINIB
     Dosage: UNK
  4. PREDNISONE [Concomitant]
     Active Substance: PREDNISONE
     Dosage: UNK

REACTIONS (18)
  - Brain neoplasm [Unknown]
  - Rheumatoid arthritis [Unknown]
  - Product dose omission in error [Unknown]
  - Drug ineffective [Unknown]
  - Blood cholesterol increased [Unknown]
  - Gastric disorder [Unknown]
  - Memory impairment [Unknown]
  - Condition aggravated [Unknown]
  - Arthralgia [Unknown]
  - Burning sensation [Unknown]
  - Swelling [Unknown]
  - Bone pain [Unknown]
  - Limb injury [Unknown]
  - Joint injury [Unknown]
  - Limb injury [Unknown]
  - Peripheral swelling [Unknown]
  - Sensitivity to weather change [Unknown]
  - Joint injury [Unknown]

NARRATIVE: CASE EVENT DATE: 20230101
